FAERS Safety Report 6056555-7 (Version None)
Quarter: 2009Q1

REPORT INFORMATION
  Report Type: 
  Country: None (occurrence: None)
  Receive Date: 20090126
  Receipt Date: 20090115
  Transmission Date: 20090719
  Serious: Yes (Hospitalization)
  Sender: FDA-Public Use
  Company Number: 2009-00164

PATIENT
  Age: 50 Year
  Sex: Male
  Weight: 81.6 kg

DRUGS (4)
  1. VELCADE [Suspect]
     Indication: MULTIPLE MYELOMA
  2. REVLIMID [Suspect]
     Indication: MULTIPLE MYELOMA
  3. DECADRON [Suspect]
     Indication: MULTIPLE MYELOMA
  4. LOVENOX [Concomitant]

REACTIONS (1)
  - INTRA-ABDOMINAL HAEMORRHAGE [None]
